FAERS Safety Report 15716355 (Version 1)
Quarter: 2018Q4

REPORT INFORMATION
  Report Type: Spontaneous
  Country: NO (occurrence: NO)
  Receive Date: 20181213
  Receipt Date: 20181213
  Transmission Date: 20190205
  Serious: Yes (Hospitalization, Other)
  Sender: FDA-Public Use
  Company Number: NO-BRISTOL-MYERS SQUIBB COMPANY-BMS-2018-117166

PATIENT
  Age: 80 Year
  Sex: Male

DRUGS (1)
  1. HYDROXYUREA. [Suspect]
     Active Substance: HYDROXYUREA
     Indication: PRIMARY MYELOFIBROSIS
     Dosage: 2500 MG, DAILY
     Route: 065

REACTIONS (5)
  - Platelet count decreased [Unknown]
  - Anaemia [Unknown]
  - Product use in unapproved indication [Unknown]
  - Leukocytosis [Unknown]
  - Headache [Unknown]
